FAERS Safety Report 11214639 (Version 1)
Quarter: 2015Q2

REPORT INFORMATION
  Report Type: Spontaneous
  Country: EE (occurrence: EE)
  Receive Date: 20150624
  Receipt Date: 20150624
  Transmission Date: 20150821
  Serious: Yes (Death, Hospitalization)
  Sender: FDA-Public Use
  Company Number: EE-ORION CORPORATION ORION PHARMA-15_00001254

PATIENT
  Age: 72 Year
  Sex: Male

DRUGS (9)
  1. BETALOC [Concomitant]
     Active Substance: METOPROLOL TARTRATE
     Indication: HYPERTENSION
     Dosage: STRENGTH: 50 MG
     Route: 048
  2. FOLVERLAN [Concomitant]
     Active Substance: FOLIC ACID
     Route: 048
  3. TREXAN [Suspect]
     Active Substance: METHOTREXATE SODIUM
     Indication: RHEUMATOID ARTHRITIS
     Route: 048
     Dates: start: 20121217
  4. ENBREL [Suspect]
     Active Substance: ETANERCEPT
     Indication: RHEUMATOID ARTHRITIS
     Route: 058
     Dates: start: 20121217
  5. BONVIVA [Concomitant]
     Active Substance: IBANDRONATE SODIUM
     Indication: OSTEOPOROSIS
     Route: 048
  6. PREDNISOLON [Suspect]
     Active Substance: PREDNISOLONE
     Indication: RHEUMATOID ARTHRITIS
     Dosage: STRENGTH: 5 MG
     Route: 048
     Dates: start: 20121217
  7. RANIBERL [Concomitant]
     Dosage: STRENGTH: 150 MG
     Route: 048
  8. DICLOFENAC [Concomitant]
     Active Substance: DICLOFENAC
     Indication: RHEUMATOID ARTHRITIS
     Route: 065
  9. NORVASC [Concomitant]
     Active Substance: AMLODIPINE BESYLATE
     Indication: HYPERTENSION
     Route: 048

REACTIONS (5)
  - Pneumonia [Fatal]
  - Sepsis [Unknown]
  - Acute respiratory failure [Fatal]
  - Cardiac failure acute [Unknown]
  - Renal failure [Fatal]

NARRATIVE: CASE EVENT DATE: 20141212
